FAERS Safety Report 6222110-9 (Version None)
Quarter: 2009Q2

REPORT INFORMATION
  Report Type: 
  Country: None (occurrence: None)
  Receive Date: 20090608
  Receipt Date: 20090608
  Transmission Date: 20091009
  Serious: Yes (Life-Threatening, Disabling)
  Sender: FDA-Public Use
  Company Number: None

PATIENT
  Sex: Female
  Weight: 72.5755 kg

DRUGS (1)
  1. ETODOLAC [Suspect]
     Indication: SWELLING
     Dosage: 1 DOSE OF 1 TABLET
     Dates: start: 20090604, end: 20090605

REACTIONS (4)
  - DYSPHONIA [None]
  - DYSPNOEA [None]
  - PRURITUS [None]
  - THROAT TIGHTNESS [None]
